FAERS Safety Report 20702154 (Version 1)
Quarter: 2022Q2

REPORT INFORMATION
  Report Type: Other
  Country: US (occurrence: None)
  Receive Date: 20220412
  Receipt Date: 20220412
  Transmission Date: 20220721
  Serious: Yes (Other)
  Sender: FDA-Public Use
  Company Number: US-ROCHE-2776416

PATIENT
  Sex: Female

DRUGS (1)
  1. ZELBORAF [Suspect]
     Active Substance: VEMURAFENIB
     Indication: Thyroid cancer
     Dosage: TAKE 2 TABLET(S) BY MOUTH TWICE A DAY
     Route: 048

REACTIONS (4)
  - Skin cancer [Unknown]
  - Malaise [Unknown]
  - Diarrhoea [Unknown]
  - Off label use [Unknown]
